FAERS Safety Report 8825208 (Version 2)
Quarter: 2012Q4

REPORT INFORMATION
  Report Type: Report from Study
  Country: FR (occurrence: FR)
  Receive Date: 20121004
  Receipt Date: 20121005
  Transmission Date: 20130627
  Serious: Yes (Other)
  Sender: FDA-Public Use
  Company Number: FR-ABBOTT-12P-056-0956014-00

PATIENT
  Age: 46 Year
  Sex: Male
  Weight: 98 kg

DRUGS (4)
  1. HUMIRA 40 MG/ 0.8 ML PRE-FILLED SYRINGE [Suspect]
     Indication: SPONDYLITIS
     Route: 058
     Dates: start: 20111215, end: 201207
  2. DEPAKOTE [Concomitant]
     Indication: BIPOLAR DISORDER
     Dosage: 1 DAY
     Route: 048
     Dates: start: 201202
  3. EFFEXOR [Concomitant]
     Indication: BIPOLAR DISORDER
     Route: 048
     Dates: start: 2009
  4. LEVOTYROX [Concomitant]
     Indication: HYPOTHYROIDISM
     Route: 048
     Dates: start: 201202

REACTIONS (5)
  - Angioedema [Recovered/Resolved]
  - Rubber sensitivity [Unknown]
  - Injection site swelling [Unknown]
  - Diarrhoea [Unknown]
  - Urticaria [Recovered/Resolved]
